FAERS Safety Report 23783053 (Version 1)
Quarter: 2024Q2

REPORT INFORMATION
  Report Type: Spontaneous
  Country: US (occurrence: US)
  Receive Date: 20240425
  Receipt Date: 20240425
  Transmission Date: 20240716
  Serious: Yes (Hospitalization, Other)
  Sender: FDA-Public Use
  Company Number: US-MLMSERVICE-20240405-PI015115-00153-1

PATIENT
  Age: 68 Year
  Sex: Male

DRUGS (3)
  1. FLUOXETINE HYDROCHLORIDE [Interacting]
     Active Substance: FLUOXETINE HYDROCHLORIDE
     Indication: Major depression
     Dosage: 80 MG, UNKNOWN
     Route: 065
  2. BUPROPION\DEXTROMETHORPHAN [Interacting]
     Active Substance: BUPROPION\DEXTROMETHORPHAN
     Indication: Depressive symptom
     Dosage: 1 DOSAGE FORM, DAILY
     Route: 065
     Dates: start: 202308
  3. PRAZOSIN [Concomitant]
     Active Substance: PRAZOSIN
     Indication: Major depression
     Dosage: 5 MG, DAILY NIGHTLY
     Route: 065

REACTIONS (3)
  - Drug interaction [Recovering/Resolving]
  - Toxicity to various agents [Recovering/Resolving]
  - Serotonin syndrome [Recovering/Resolving]
